FAERS Safety Report 5700058-3 (Version None)
Quarter: 2008Q2

REPORT INFORMATION
  Report Type: 
  Country: None (occurrence: None)
  Receive Date: 20080410
  Receipt Date: 20080401
  Transmission Date: 20081010
  Serious: Yes (Other)
  Sender: FDA-Public Use
  Company Number: US-ROCHE-546707

PATIENT
  Sex: Male
  Weight: 89.8 kg

DRUGS (2)
  1. PEG-INTERFERON A-2A (RO 25-8310) [Suspect]
     Route: 058
     Dates: start: 20080205, end: 20080213
  2. RIBAVIRIN [Suspect]
     Route: 048
     Dates: start: 20080205, end: 20080213

REACTIONS (2)
  - PARANOIA [None]
  - SUICIDAL IDEATION [None]
